FAERS Safety Report 7995756-5 (Version None)
Quarter: 2011Q4

REPORT INFORMATION
  Report Type: 
  Country: None (occurrence: None)
  Receive Date: 20111220
  Receipt Date: 20110914
  Transmission Date: 20120403
  Serious: No
  Sender: FDA-Public Use
  Company Number: US-MYLANLABS-2011S1019431

PATIENT
  Age: 67 Year
  Sex: Female

DRUGS (5)
  1. LETROZOLE [Suspect]
     Indication: BREAST CANCER
     Route: 048
     Dates: start: 20110901
  2. FEMARA [Suspect]
     Indication: BREAST CANCER
     Route: 048
     Dates: start: 20100101, end: 20110901
  3. VALACYCLOVIR HYDROCHLORIDE [Suspect]
     Route: 048
     Dates: start: 20100101
  4. VALACYCLOVIR HYDROCHLORIDE [Suspect]
     Indication: GENITAL HERPES
     Route: 048
     Dates: start: 20100101
  5. NAPROXEN [Suspect]
     Indication: PAIN
     Route: 048

REACTIONS (1)
  - CONTUSION [None]
